FAERS Safety Report 6997620-7 (Version None)
Quarter: 2010Q3

REPORT INFORMATION
  Report Type: 
  Country: None (occurrence: None)
  Receive Date: 20100918
  Receipt Date: 20091112
  Transmission Date: 20110219
  Serious: No
  Sender: FDA-Public Use
  Company Number: US-WYE-H12161009

PATIENT
  Sex: Female

DRUGS (4)
  1. PRISTIQ [Suspect]
     Indication: DEPRESSION
     Route: 048
     Dates: start: 20090912, end: 20091029
  2. PRISTIQ [Suspect]
     Route: 048
     Dates: start: 20091030
  3. AMBIEN [Concomitant]
  4. DOXEPIN HCL [Concomitant]

REACTIONS (1)
  - TINNITUS [None]
